FAERS Safety Report 8451137-1 (Version None)
Quarter: 2012Q2

REPORT INFORMATION
  Report Type: 
  Country: None (occurrence: None)
  Receive Date: 20120613
  Receipt Date: 20071114
  Transmission Date: 20120825
  Serious: Yes (Other)
  Sender: FDA-Public Use
  Company Number: 2012VX002540

PATIENT
  Age: 66 Year
  Sex: Male

DRUGS (3)
  1. TAXOTERE [Suspect]
     Indication: LIP AND/OR ORAL CAVITY CANCER
     Dosage: 60 MG/M**2;QD;IV
     Route: 042
     Dates: start: 20070701
  2. CISPLATIN [Suspect]
     Indication: LIP AND/OR ORAL CAVITY CANCER
     Dosage: 60 MG/M**2;IV
     Route: 042
     Dates: start: 20070701
  3. FLUOROURACIL [Suspect]
     Indication: LIP AND/OR ORAL CAVITY CANCER
     Dosage: 750 MG;QD;IV
     Route: 042
     Dates: start: 20070701

REACTIONS (4)
  - INAPPROPRIATE ANTIDIURETIC HORMONE SECRETION [None]
  - WHITE BLOOD CELL COUNT DECREASED [None]
  - ILEUS [None]
  - ALTERED STATE OF CONSCIOUSNESS [None]
